FAERS Safety Report 16542402 (Version 8)
Quarter: 2019Q4

REPORT INFORMATION
  Report Type: Report from Study
  Country: AU (occurrence: AU)
  Receive Date: 20190708
  Receipt Date: 20191024
  Transmission Date: 20200122
  Serious: Yes (Hospitalization)
  Sender: FDA-Public Use
  Company Number: AU-AMGEN-AUSCT2019109111

PATIENT
  Age: 47 Year
  Sex: Female
  Weight: 59.6 kg

DRUGS (6)
  1. PARACETAMOL [Concomitant]
     Active Substance: ACETAMINOPHEN
     Indication: PYREXIA
     Dosage: 1 GRAM
     Route: 042
     Dates: start: 20190703, end: 20190705
  2. HEPARIN SALINE [Concomitant]
     Dosage: 5 MILLILITER
     Route: 042
     Dates: start: 20190703, end: 20190703
  3. ATEZOLIZUMAB. [Suspect]
     Active Substance: ATEZOLIZUMAB
     Indication: TRIPLE NEGATIVE BREAST CANCER
     Dosage: 270 MILLILITER
     Route: 042
     Dates: start: 20190704, end: 20190704
  4. LIGNOCAINE [LIDOCAINE] [Concomitant]
     Dosage: 10 MILLILITER
     Route: 058
     Dates: start: 20190703, end: 20190703
  5. TALIMOGENE LAHERPAREPVEC [Suspect]
     Active Substance: TALIMOGENE LAHERPAREPVEC
     Indication: TRIPLE NEGATIVE BREAST CANCER
     Dosage: UNK MILLILITER
     Route: 026
     Dates: start: 20190703, end: 20190703
  6. CEFOTAXIME [Concomitant]
     Active Substance: CEFOTAXIME SODIUM
     Indication: PYREXIA
     Dosage: 1 GRAM
     Route: 042
     Dates: start: 20190703

REACTIONS (1)
  - Cytokine release syndrome [Recovered/Resolved]

NARRATIVE: CASE EVENT DATE: 20190704
